FAERS Safety Report 5257577-6 (Version None)
Quarter: 2007Q1

REPORT INFORMATION
  Report Type: 
  Country: None (occurrence: None)
  Receive Date: 20070307
  Receipt Date: 20060923
  Transmission Date: 20070707
  Serious: No
  Sender: FDA-Public Use
  Company Number: US-GLAXOSMITHKLINE-A0620668A

PATIENT
  Age: 47 Year
  Sex: Male

DRUGS (6)
  1. REQUIP [Suspect]
     Indication: RESTLESS LEGS SYNDROME
     Dosage: .25MG PER DAY
     Route: 048
     Dates: end: 20060918
  2. ESCITALOPRAM OXALATE [Concomitant]
  3. CARBAMAZEPINE [Concomitant]
  4. ZELNORM [Concomitant]
  5. NASACORT [Concomitant]
  6. LEXAPRO [Concomitant]

REACTIONS (7)
  - AMNESIA [None]
  - DIPLOPIA [None]
  - DIZZINESS [None]
  - DRUG INTERACTION [None]
  - FATIGUE [None]
  - RASH [None]
  - VISION BLURRED [None]
